FAERS Safety Report 10195614 (Version 3)
Quarter: 2014Q2

REPORT INFORMATION
  Report Type: Report from Study
  Country: CA (occurrence: CA)
  Receive Date: 20140527
  Receipt Date: 20140611
  Transmission Date: 20141212
  Serious: Yes (Other)
  Sender: FDA-Public Use
  Company Number: CA-ROCHE-1199608

PATIENT
  Sex: Male
  Weight: 88.5 kg

DRUGS (19)
  1. RITUXAN [Suspect]
     Indication: RHEUMATOID ARTHRITIS
     Dosage: FREQUENCY: DAY 1 + 15
     Route: 042
     Dates: start: 20120920
  2. OXYNEO [Concomitant]
  3. AMLODIPINE [Concomitant]
  4. OXYCOCET [Concomitant]
  5. ASA [Concomitant]
  6. LEVITRA [Concomitant]
  7. AZATHIOPRINE [Concomitant]
  8. BACLOFEN [Concomitant]
  9. HYDROCHLOROTHIAZIDE [Concomitant]
  10. DOCUSATE SODIUM [Concomitant]
  11. IRBESARTAN [Concomitant]
  12. PREDNISONE [Concomitant]
  13. RABEPRAZOLE [Concomitant]
  14. SIMVASTATIN [Concomitant]
  15. VITAMIN B12 [Concomitant]
  16. DIPHENHYDRAMINE HCL [Concomitant]
     Indication: PREMEDICATION
     Route: 048
     Dates: start: 20120920
  17. ACETAMINOPHEN [Concomitant]
     Indication: PREMEDICATION
     Route: 048
     Dates: start: 20120920
  18. METHYLPREDNISOLONE [Concomitant]
     Indication: PREMEDICATION
     Route: 042
     Dates: start: 20120920
  19. WARFARIN [Concomitant]
     Indication: DIABETES MELLITUS

REACTIONS (4)
  - Diabetes mellitus [Not Recovered/Not Resolved]
  - Weight increased [Not Recovered/Not Resolved]
  - Pain [Not Recovered/Not Resolved]
  - Arthralgia [Unknown]
